FAERS Safety Report 9029716 (Version 1)
Quarter: 2013Q1

REPORT INFORMATION
  Report Type: Spontaneous
  Country: JP (occurrence: JP)
  Receive Date: 20130124
  Receipt Date: 20130124
  Transmission Date: 20140127
  Serious: Yes (Other)
  Sender: FDA-Public Use
  Company Number: JP-US-EMD SERONO, INC.-7187952

PATIENT
  Age: 13 Year
  Sex: Female
  Weight: 75 kg

DRUGS (1)
  1. SAIZEN [Suspect]
     Indication: HYPOPITUITARISM
     Route: 065

REACTIONS (1)
  - Epiphysiolysis [Unknown]
